FAERS Safety Report 5105303-3 (Version None)
Quarter: 2006Q3

REPORT INFORMATION
  Report Type: 
  Country: None (occurrence: None)
  Receive Date: 20060912
  Receipt Date: 20060828
  Transmission Date: 20061208
  Serious: Yes (Other)
  Sender: FDA-Public Use
  Company Number: 8016860

PATIENT
  Age: 20 Year
  Sex: Male
  Weight: 30 kg

DRUGS (2)
  1. KEPPRA [Suspect]
     Indication: CONVULSION
     Dosage: 625 MG
     Dates: start: 20040101, end: 20060101
  2. TEGRETOL [Concomitant]

REACTIONS (6)
  - BONE OPERATION [None]
  - EPILEPSY [None]
  - FEMUR FRACTURE [None]
  - OSTEOPOROSIS [None]
  - PATHOLOGICAL FRACTURE [None]
  - UNDERWEIGHT [None]
